FAERS Safety Report 13126288 (Version 1)
Quarter: 2017Q1

REPORT INFORMATION
  Report Type: Spontaneous
  Country: FR (occurrence: FR)
  Receive Date: 20170118
  Receipt Date: 20170118
  Transmission Date: 20170428
  Serious: Yes (Other)
  Sender: FDA-Public Use
  Company Number: FR-PFIZER INC-2016605540

PATIENT
  Age: 26 Year
  Sex: Female

DRUGS (3)
  1. METHOTREXATE SODIUM. [Suspect]
     Active Substance: METHOTREXATE SODIUM
     Indication: OSTEOSARCOMA
     Dosage: 18 G, UNK (12 G/M2)
     Dates: start: 19890405
  2. FOLINIC ACID [Concomitant]
     Active Substance: LEUCOVORIN
     Indication: DETOXIFICATION
     Dosage: 50 MG, UNK (50 MG EVERY HOUR)
  3. METHOTREXATE SODIUM. [Suspect]
     Active Substance: METHOTREXATE SODIUM
     Indication: SACRALISATION
     Dosage: 12 G, UNK (8 G/M2)
     Dates: start: 19890330

REACTIONS (2)
  - Renal failure [Recovered/Resolved]
  - Metabolic alkalosis [Unknown]
